FAERS Safety Report 15869377 (Version 2)
Quarter: 2019Q1

REPORT INFORMATION
  Report Type: Spontaneous
  Country: JP (occurrence: JP)
  Receive Date: 20190125
  Receipt Date: 20190225
  Transmission Date: 20190417
  Serious: Yes (Hospitalization, Other)
  Sender: FDA-Public Use
  Company Number: JP-009507513-1901JPN001282J

PATIENT
  Age: 59 Year
  Sex: Male
  Weight: 58 kg

DRUGS (7)
  1. NAFTOPIDIL [Concomitant]
     Active Substance: NAFTOPIDIL
     Dosage: 25 MILLIGRAM, QD
     Route: 048
     Dates: start: 20181207
  2. KEFRAL [Concomitant]
     Active Substance: CEFACLOR
     Dosage: 250 MILLIGRAM, TID
     Route: 048
     Dates: start: 20181207
  3. KEYTRUDA [Suspect]
     Active Substance: PEMBROLIZUMAB
     Indication: TRANSITIONAL CELL CARCINOMA
     Dosage: 200 MILLIGRAM, Q3W
     Route: 041
     Dates: start: 20181105, end: 20181217
  4. MAGNESIUM OXIDE. [Concomitant]
     Active Substance: MAGNESIUM OXIDE
     Dosage: 660 MILLIGRAM, TID
     Route: 048
     Dates: start: 20181207
  5. SENNOSIDE [Concomitant]
     Active Substance: SENNOSIDES
     Dosage: 24 MILLIGRAM, QD
     Route: 048
     Dates: start: 20181207
  6. BETANIS [Concomitant]
     Active Substance: MIRABEGRON
     Dosage: 50 MILLIGRAM, QD
     Route: 048
     Dates: start: 20181207
  7. ACETAMINOPHEN. [Concomitant]
     Active Substance: ACETAMINOPHEN
     Indication: PAIN
     Dosage: UNK
     Route: 048
     Dates: start: 20181207

REACTIONS (2)
  - Gastrointestinal haemorrhage [Recovered/Resolved]
  - Colitis [Unknown]

NARRATIVE: CASE EVENT DATE: 20181228
